FAERS Safety Report 13954479 (Version 1)
Quarter: 2017Q3

REPORT INFORMATION
  Report Type: Spontaneous
  Country: US (occurrence: US)
  Receive Date: 20170910
  Receipt Date: 20170910
  Transmission Date: 20171128
  Serious: No
  Sender: FDA-Public Use
  Company Number: None

PATIENT
  Age: 43 Year
  Sex: Female
  Weight: 65.25 kg

DRUGS (5)
  1. TRAMADOL. [Suspect]
     Active Substance: TRAMADOL
     Indication: PAIN
     Dosage: ?          QUANTITY:1 TABLET(S);?DAILY ORAL
     Route: 048
     Dates: start: 20170909, end: 20170909
  2. LIZIINOPRIL [Concomitant]
  3. MULTIVITAMINS [Concomitant]
     Active Substance: VITAMINS
  4. TYLENOL [Concomitant]
     Active Substance: ACETAMINOPHEN
  5. CALCIUM SUPPLEMENTS [Concomitant]
     Active Substance: CALCIUM

REACTIONS (12)
  - Crying [None]
  - Depressed mood [None]
  - Drug ineffective [None]
  - Nausea [None]
  - Mood swings [None]
  - Headache [None]
  - Paraesthesia [None]
  - Anxiety [None]
  - Confusional state [None]
  - Dizziness [None]
  - Dyspepsia [None]
  - Hallucination [None]

NARRATIVE: CASE EVENT DATE: 20170909
